FAERS Safety Report 18106841 (Version 3)
Quarter: 2020Q4

REPORT INFORMATION
  Report Type: Spontaneous
  Country: US (occurrence: US)
  Receive Date: 20200803
  Receipt Date: 20201009
  Transmission Date: 20210113
  Serious: No
  Sender: FDA-Public Use
  Company Number: US-PFIZER INC-2019170909

PATIENT
  Age: 91 Year
  Sex: Female
  Weight: 56.06 kg

DRUGS (4)
  1. PREMARIN [Suspect]
     Active Substance: ESTROGENS, CONJUGATED
     Indication: URINARY TRACT INFECTION
     Dosage: 1 G, 2X/WEEK (QUANTITY FOR 90 DAYS: 1 TUBE FOR 30 DAYS. OK TO DISPENSE 3 TUBES FOR 90 DAYS)
  2. PREMARIN [Suspect]
     Active Substance: ESTROGENS, CONJUGATED
     Dosage: UNK, 2X/WEEK
  3. SIMVASTATIN. [Concomitant]
     Active Substance: SIMVASTATIN
     Indication: BLOOD CHOLESTEROL ABNORMAL
     Dosage: UNK
  4. ATENOLOL. [Concomitant]
     Active Substance: ATENOLOL
     Indication: TACHYCARDIA
     Dosage: UNK
     Dates: start: 1970

REACTIONS (6)
  - Off label use [Unknown]
  - Product use in unapproved indication [Unknown]
  - Product dispensing error [Unknown]
  - Gastrointestinal disorder [Unknown]
  - Drug effective for unapproved indication [Unknown]
  - Weight decreased [Unknown]
